FAERS Safety Report 16623895 (Version 1)
Quarter: 2019Q3

REPORT INFORMATION
  Report Type: Spontaneous
  Country: BE (occurrence: BE)
  Receive Date: 20190724
  Receipt Date: 20190724
  Transmission Date: 20191004
  Serious: Yes (Other)
  Sender: FDA-Public Use
  Company Number: BE-TEVA-2019-BE-1081815

PATIENT
  Sex: Male

DRUGS (1)
  1. IBUPROFEN TEVA 400 MG [Suspect]
     Active Substance: IBUPROFEN
     Route: 048

REACTIONS (1)
  - Lip oedema [Unknown]
